FAERS Safety Report 4889945-6 (Version None)
Quarter: 2006Q1

REPORT INFORMATION
  Report Type: 
  Country: None (occurrence: None)
  Receive Date: 20060120
  Receipt Date: 20060104
  Transmission Date: 20060701
  Serious: Yes (Life-Threatening, Hospitalization)
  Sender: FDA-Public Use
  Company Number: HU-2006-000063

PATIENT
  Age: 51 Year
  Sex: Male

DRUGS (5)
  1. MAGNEVIST [Suspect]
     Indication: NUCLEAR MAGNETIC RESONANCE IMAGING
     Dosage: 20 ML, 1 DOSE, INTRAVENOUS
     Route: 042
     Dates: start: 20051219, end: 20051219
  2. INSULIN [Concomitant]
  3. NIFEDIPINE [Concomitant]
  4. PINDOLOL [Concomitant]
  5. CLOPAMIDE (CLOPAMIDE) [Concomitant]

REACTIONS (6)
  - BLOOD PRESSURE DECREASED [None]
  - CIRCULATORY COLLAPSE [None]
  - DERMATITIS EXFOLIATIVE [None]
  - NAUSEA [None]
  - RESPIRATORY ARREST [None]
  - VOMITING [None]
